FAERS Safety Report 10128489 (Version 2)
Quarter: 2014Q2

REPORT INFORMATION
  Report Type: Spontaneous
  Country: TR (occurrence: TR)
  Receive Date: 20140428
  Receipt Date: 20140507
  Transmission Date: 20141212
  Serious: Yes (Other)
  Sender: FDA-Public Use
  Company Number: TR-RANBAXY-2014RR-80540

PATIENT
  Age: 14 Year
  Sex: Female
  Weight: 47 kg

DRUGS (4)
  1. PARACETAMOL [Suspect]
     Indication: FATIGUE
     Dosage: 500 MG, ONE MONTH AGO, TWO OR THREE TIMES A DAY FOR FOUR DAYS
     Route: 065
  2. PARACETAMOL [Suspect]
     Indication: INFLUENZA LIKE ILLNESS
  3. CODEINE PHOSPHATE [Suspect]
     Indication: FATIGUE
     Dosage: 10 MG, ONE MONTH AGO, TWO OR THREE TIMES A DAY FOR FOUR DAYS
     Route: 065
  4. CODEINE PHOSPHATE [Suspect]
     Indication: INFLUENZA LIKE ILLNESS

REACTIONS (1)
  - Tubulointerstitial nephritis [Recovered/Resolved]
